FAERS Safety Report 6958988-0 (Version None)
Quarter: 2010Q3

REPORT INFORMATION
  Report Type: 
  Country: None (occurrence: None)
  Receive Date: 20100831
  Receipt Date: 20100820
  Transmission Date: 20110219
  Serious: Yes (Hospitalization, Disabling, Other)
  Sender: FDA-Public Use
  Company Number: US-PFIZER INC-2010086822

PATIENT
  Sex: Female
  Weight: 90.703 kg

DRUGS (21)
  1. CHANTIX [Suspect]
     Indication: SMOKING CESSATION THERAPY
     Dosage: 1 MG, 2X/DAY
     Route: 048
     Dates: start: 20080101
  2. CHANTIX [Suspect]
     Dosage: UNK
     Route: 048
     Dates: start: 20100819
  3. GLYBURIDE [Concomitant]
     Indication: DIABETES MELLITUS
     Dosage: 5 MG, 2X/DAY
     Dates: start: 19990101
  4. GLYBURIDE [Concomitant]
     Dosage: TWO TABLETS TWO TIMES A DAY
  5. LASIX [Concomitant]
     Indication: CARDIAC FAILURE CONGESTIVE
     Dosage: 20 MG, 1X/DAY
     Route: 048
  6. LASIX [Concomitant]
     Indication: HYPERTENSION
  7. SULAR [Concomitant]
     Indication: HYPERTENSION
     Dosage: 8.5 MG, 1X/DAY
     Route: 048
  8. SULAR [Concomitant]
     Dosage: 8.5 MG, UNK
  9. LEXAPRO [Concomitant]
     Indication: DEPRESSION
     Dosage: 20 MG, 1X/DAY
     Route: 048
  10. ADDERALL 10 [Concomitant]
     Indication: ATTENTION DEFICIT/HYPERACTIVITY DISORDER
     Dosage: 10 MG, 2X/DAY
     Route: 048
  11. LORTAB [Concomitant]
     Indication: FIBROMYALGIA
     Dosage: 10/500MG
     Route: 048
  12. PREDNISONE [Concomitant]
     Indication: DYSPNOEA
     Dosage: 20 MG, UNK
  13. BENICAR [Concomitant]
     Indication: HYPERTENSION
     Dosage: 12.5 MG, 1X/DAY
     Route: 048
  14. BENICAR [Concomitant]
     Dosage: 60 MG, UNK
  15. PREMARIN [Concomitant]
     Indication: HYSTERECTOMY
     Dosage: 0.65 MG, 1X/DAY
     Route: 048
  16. SULINDAC [Concomitant]
     Indication: MUSCLE SPASMS
     Dosage: 200 MG, 1X/DAY
  17. SEROQUEL [Concomitant]
     Indication: BIPOLAR DISORDER
     Dosage: 50 MG, 1X/DAY
     Route: 048
  18. AMBIEN [Concomitant]
     Indication: SLEEP DISORDER
     Dosage: 10 MG, 1X/DAY
     Route: 048
  19. OXYGEN [Concomitant]
     Indication: SLEEP APNOEA SYNDROME
     Dosage: UNK
  20. MONTELUKAST SODIUM [Concomitant]
     Indication: DYSPNOEA
     Dosage: 10 MG, 1X/DAY
     Route: 048
  21. VALIUM [Concomitant]
     Indication: ANXIETY
     Dosage: 10 MG, 3X/DAY

REACTIONS (13)
  - ARTERIAL OCCLUSIVE DISEASE [None]
  - ASTHMA [None]
  - BRONCHITIS [None]
  - CHRONIC OBSTRUCTIVE PULMONARY DISEASE [None]
  - COMA [None]
  - COUGH [None]
  - FEELING ABNORMAL [None]
  - IMPLANTABLE DEFIBRILLATOR INSERTION [None]
  - LUNG DISORDER [None]
  - MALAISE [None]
  - MEMORY IMPAIRMENT [None]
  - RESPIRATORY ARREST [None]
  - URINARY TRACT INFECTION [None]
